APPROVED DRUG PRODUCT: CYCLOPHOSPHAMIDE
Active Ingredient: CYCLOPHOSPHAMIDE
Strength: 1GM/VIAL
Dosage Form/Route: INJECTABLE;INJECTION
Application: A210046 | Product #002 | TE Code: AP
Applicant: AMNEAL EU LTD
Approved: May 25, 2018 | RLD: No | RS: No | Type: RX